FAERS Safety Report 10265388 (Version 1)
Quarter: 2014Q2

REPORT INFORMATION
  Report Type: Spontaneous
  Country: DE (occurrence: DE)
  Receive Date: 20140627
  Receipt Date: 20140627
  Transmission Date: 20141212
  Serious: Yes (Life-Threatening, Hospitalization)
  Sender: FDA-Public Use
  Company Number: DE-ABBVIE-14P-062-1252782-00

PATIENT
  Age: 65 Year
  Sex: Male

DRUGS (6)
  1. ERGENYL CHRONO [Suspect]
     Indication: PRODUCT USED FOR UNKNOWN INDICATION
     Route: 048
  2. VALSARTAN [Suspect]
     Indication: PRODUCT USED FOR UNKNOWN INDICATION
  3. NEURO (CYANOCOBALAMIN\PYRIDOXINE HYDROCHLORIDE\THIAMINE) [Suspect]
     Indication: PRODUCT USED FOR UNKNOWN INDICATION
  4. AGOMELATINE [Suspect]
     Indication: PRODUCT USED FOR UNKNOWN INDICATION
  5. THIAMAZOLE [Suspect]
     Indication: PRODUCT USED FOR UNKNOWN INDICATION
  6. LORAZEPAM [Concomitant]
     Indication: PRODUCT USED FOR UNKNOWN INDICATION

REACTIONS (4)
  - Coma [Not Recovered/Not Resolved]
  - Aphasia [Not Recovered/Not Resolved]
  - Incontinence [Not Recovered/Not Resolved]
  - Weight decreased [Not Recovered/Not Resolved]
